FAERS Safety Report 10775138 (Version 2)
Quarter: 2015Q4

REPORT INFORMATION
  Report Type: Report from Study
  Country: US (occurrence: US)
  Receive Date: 20150209
  Receipt Date: 20151215
  Transmission Date: 20160304
  Serious: Yes (Hospitalization, Other)
  Sender: FDA-Public Use
  Company Number: US-CELGENEUS-USA-2015015187

PATIENT
  Age: 69 Year
  Sex: Male
  Weight: 56.5 kg

DRUGS (3)
  1. REVLIMID [Suspect]
     Active Substance: LENALIDOMIDE
     Indication: PLASMA CELL MYELOMA
     Route: 048
     Dates: start: 201409, end: 201412
  2. DEXAMETHASONE. [Suspect]
     Active Substance: DEXAMETHASONE
     Indication: PLASMA CELL MYELOMA
     Dosage: 1.6 MILLIGRAM
     Route: 048
     Dates: start: 201309, end: 201412
  3. BORTEZOMIB [Suspect]
     Active Substance: BORTEZOMIB
     Indication: PLASMA CELL MYELOMA
     Route: 058
     Dates: start: 20130918, end: 20141201

REACTIONS (1)
  - Subdural haemorrhage [Recovered/Resolved]

NARRATIVE: CASE EVENT DATE: 20141205
